FAERS Safety Report 9055626 (Version 2)
Quarter: 2013Q1

REPORT INFORMATION
  Report Type: Report from Study
  Country: US (occurrence: US)
  Receive Date: 20130206
  Receipt Date: 20130214
  Transmission Date: 20140127
  Serious: Yes (Other)
  Sender: FDA-Public Use
  Company Number: US-BAXTER-2013BAX004322

PATIENT
  Age: 54 None
  Sex: Male
  Weight: 65.45 kg

DRUGS (3)
  1. GAMMAGARD S/D [Suspect]
     Indication: IMMUNODEFICIENCY
     Route: 042
     Dates: start: 2002
  2. GAMMAGARD S/D [Suspect]
     Route: 042
     Dates: start: 20121128
  3. GAMMAGARD S/D [Suspect]
     Route: 042
     Dates: start: 20130123

REACTIONS (1)
  - Sinusitis [Recovering/Resolving]
